FAERS Safety Report 7985733-2 (Version None)
Quarter: 2011Q4

REPORT INFORMATION
  Report Type: 
  Country: None (occurrence: None)
  Receive Date: 20111216
  Receipt Date: 20111216
  Transmission Date: 20120403
  Serious: Yes (Life-Threatening)
  Sender: FDA-Public Use
  Company Number: None

PATIENT
  Age: 47 Year
  Sex: Female
  Weight: 59.874 kg

DRUGS (1)
  1. CYCLOBENZAPRINE [Suspect]
     Indication: HYPERSENSITIVITY
     Dosage: 1  15 USED OVER PERIOD
     Route: 048
     Dates: start: 20111108, end: 20111211

REACTIONS (6)
  - PRURITUS [None]
  - RASH [None]
  - GASTRIC HAEMORRHAGE [None]
  - TREMOR [None]
  - MIGRAINE [None]
  - HEART RATE INCREASED [None]
